FAERS Safety Report 5488792-4 (Version None)
Quarter: 2007Q4

REPORT INFORMATION
  Report Type: 
  Country: None (occurrence: None)
  Receive Date: 20071017
  Receipt Date: 20050504
  Transmission Date: 20080405
  Serious: Yes (Death, Other)
  Sender: FDA-Public Use
  Company Number: GB-MERCK-0503USA04339

PATIENT
  Age: 75 Year
  Sex: Female

DRUGS (15)
  1. PRINIVIL [Suspect]
     Indication: HYPERTENSION
     Route: 048
     Dates: start: 20020301
  2. PRINIVIL [Suspect]
     Route: 048
  3. ASPIRIN [Suspect]
     Indication: PAIN
     Route: 065
     Dates: start: 20020301
  4. ATORVASTATIN CALCIUM [Suspect]
     Indication: HYPERCHOLESTEROLAEMIA
     Route: 065
     Dates: start: 19990101
  5. BUDESONIDE [Suspect]
     Indication: ASTHMA
     Dates: start: 20020301
  6. QUININE SULFATE [Suspect]
     Indication: MUSCLE SPASMS
     Route: 065
  7. LANSOPRAZOLE [Suspect]
     Indication: DUODENAL ULCER
     Route: 065
     Dates: start: 20020301
  8. NITROGLYCERIN [Suspect]
     Indication: PAIN
     Route: 065
     Dates: start: 20020301
  9. DILTIAZEM HYDROCHLORIDE [Suspect]
     Indication: HYPERTENSION
     Route: 065
     Dates: start: 20020301
  10. MIDAZOLAM [Suspect]
     Indication: ANAESTHESIA
     Route: 042
     Dates: start: 20020301, end: 20020301
  11. FENTANYL [Suspect]
     Indication: ANAESTHESIA
     Route: 042
     Dates: start: 20020301, end: 20020301
  12. PROPOFOL [Suspect]
     Indication: ANAESTHESIA
     Route: 042
     Dates: start: 20020301, end: 20020301
  13. PANCURONIUM BROMIDE [Suspect]
     Indication: MUSCLE RELAXANT THERAPY
     Route: 065
     Dates: start: 20020301, end: 20020301
  14. ARAVA [Suspect]
     Indication: RHEUMATOID ARTHRITIS
     Route: 048
     Dates: start: 20020301
  15. ACETAMINOPHEN AND CODEINE PHOSPHATE [Suspect]
     Indication: RHEUMATOID ARTHRITIS
     Route: 065
     Dates: start: 20020301

REACTIONS (7)
  - ACUTE HEPATIC FAILURE [None]
  - CORONARY ARTERY DISEASE [None]
  - GASTROINTESTINAL HAEMORRHAGE [None]
  - HAEMATEMESIS [None]
  - LABILE BLOOD PRESSURE [None]
  - RENAL FAILURE [None]
  - ULCER [None]
